FAERS Safety Report 23226418 (Version 1)
Quarter: 2023Q4

REPORT INFORMATION
  Report Type: Spontaneous
  Country: US (occurrence: None)
  Receive Date: 20231121
  Receipt Date: 20231121
  Transmission Date: 20240109
  Serious: Yes (Hospitalization)
  Sender: FDA-Public Use
  Company Number: None

PATIENT
  Sex: Female

DRUGS (8)
  1. BIKTARVY [Suspect]
     Active Substance: BICTEGRAVIR SODIUM\EMTRICITABINE\TENOFOVIR ALAFENAMIDE FUMARATE
     Indication: HIV infection
     Dosage: OTHER QUANTITY : 50/200/25M;?FREQUENCY : DAILY;?
     Route: 048
     Dates: start: 202111
  2. JANUVIA [Suspect]
     Active Substance: SITAGLIPTIN PHOSPHATE
     Indication: HIV infection
     Dosage: FREQUENCY : DAILY;?
     Route: 048
     Dates: start: 202111
  3. WELLBUTRIN XL [Concomitant]
     Active Substance: BUPROPION HYDROCHLORIDE
  4. CYCLOBENZAPRINE [Concomitant]
     Active Substance: CYCLOBENZAPRINE
  5. BUPROPION HYDROCHLORIDE XL [Concomitant]
     Active Substance: BUPROPION HYDROCHLORIDE
  6. ATORVASTATIN CALCIUM [Concomitant]
     Active Substance: ATORVASTATIN CALCIUM
  7. ASPIRIN CHILD CHEW [Concomitant]
  8. GABAPENTIN [Concomitant]
     Active Substance: GABAPENTIN

REACTIONS (3)
  - Urticaria [None]
  - Pruritus [None]
  - Abscess drainage [None]
